FAERS Safety Report 20897169 (Version 2)
Quarter: 2022Q2

REPORT INFORMATION
  Report Type: Spontaneous
  Country: US (occurrence: US)
  Receive Date: 20220531
  Receipt Date: 20220616
  Transmission Date: 20220721
  Serious: Yes (Other)
  Sender: FDA-Public Use
  Company Number: US-PFIZER INC-202200760973

PATIENT
  Age: 55 Year
  Sex: Female
  Weight: 112.49 kg

DRUGS (1)
  1. PAXLOVID [Suspect]
     Active Substance: NIRMATRELVIR\RITONAVIR
     Indication: COVID-19 treatment
     Dosage: UNK (MORNING DOSE AND NIGHT DOSE)
     Dates: start: 20220517, end: 20220521

REACTIONS (7)
  - Colitis ulcerative [Unknown]
  - Therapeutic product effect incomplete [Not Recovered/Not Resolved]
  - Taste disorder [Recovered/Resolved]
  - Fatigue [Recovering/Resolving]
  - Headache [Recovered/Resolved]
  - Cough [Not Recovered/Not Resolved]
  - Abdominal discomfort [Not Recovered/Not Resolved]

NARRATIVE: CASE EVENT DATE: 20220517
